FAERS Safety Report 24236595 (Version 1)
Quarter: 2024Q3

REPORT INFORMATION
  Report Type: Report from Study
  Country: US (occurrence: None)
  Receive Date: 20240822
  Receipt Date: 20240822
  Transmission Date: 20241016
  Serious: Yes (Hospitalization)
  Sender: ASTRAZENECA
  Company Number: 2022A323808

PATIENT
  Age: 19521 Day
  Sex: Female

DRUGS (2)
  1. LYNPARZA [Suspect]
     Active Substance: OLAPARIB
     Indication: Ovarian cancer
     Route: 048
     Dates: start: 202105
  2. LYNPARZA [Suspect]
     Active Substance: OLAPARIB
     Indication: Breast cancer female
     Route: 048
     Dates: start: 202105

REACTIONS (5)
  - Blood pressure increased [Unknown]
  - Urinary tract infection [Unknown]
  - Pain in extremity [Unknown]
  - Arthralgia [Unknown]
  - Memory impairment [Unknown]
